FAERS Safety Report 5737660-9 (Version None)
Quarter: 2008Q2

REPORT INFORMATION
  Report Type: 
  Country: None (occurrence: None)
  Receive Date: 20080512
  Receipt Date: 20080512
  Transmission Date: 20081010
  Serious: Yes (Life-Threatening, Hospitalization, Other)
  Sender: FDA-Public Use
  Company Number: None

PATIENT
  Sex: Male
  Weight: 81.6475 kg

DRUGS (2)
  1. DIGITEK 0.25 MG ACTAVIS TOTOWA LLC [Suspect]
     Indication: ATRIAL FIBRILLATION
     Dosage: 0.25 MG 1X DAILY
     Dates: start: 20080109, end: 20080430
  2. DIGITEK 0.25 MG ACTAVIS TOTOWA LLC [Suspect]
     Indication: HEART RATE IRREGULAR
     Dosage: 0.25 MG 1X DAILY
     Dates: start: 20080109, end: 20080430

REACTIONS (2)
  - LOSS OF CONSCIOUSNESS [None]
  - PHARMACEUTICAL PRODUCT COMPLAINT [None]
